FAERS Safety Report 20808241 (Version 2)
Quarter: 2022Q3

REPORT INFORMATION
  Report Type: Spontaneous
  Country: BE (occurrence: BE)
  Receive Date: 20220510
  Receipt Date: 20220809
  Transmission Date: 20221027
  Serious: Yes (Hospitalization, Other)
  Sender: FDA-Public Use
  Company Number: BE-NOVARTISPH-NVSC2022BE103879

PATIENT
  Age: 59 Year
  Sex: Female

DRUGS (10)
  1. DEXAMETHASONE [Suspect]
     Active Substance: DEXAMETHASONE
     Indication: Plasma cell myeloma
     Dosage: 20 MG (FREQUENCY TEXT: NOT PROVIDED)
     Route: 048
     Dates: start: 20160811
  2. DEXAMETHASONE [Suspect]
     Active Substance: DEXAMETHASONE
     Dosage: 20 MG (FREQUENCY TEXT: NOT PROVIDED)
     Route: 048
     Dates: start: 20160818
  3. DEXAMETHASONE [Suspect]
     Active Substance: DEXAMETHASONE
     Dosage: 20 MG (FREQUENCY TEXT: NOT PROVIDED)
     Route: 048
     Dates: start: 20160825
  4. DEXAMETHASONE [Suspect]
     Active Substance: DEXAMETHASONE
     Dosage: 20 MG (FREQUENCY TEXT: NOT PROVIDED)
     Route: 048
     Dates: start: 20160901
  5. DEXAMETHASONE [Suspect]
     Active Substance: DEXAMETHASONE
     Dosage: 20 MG (FREQUENCY TEXT: NOT PROVIDED)
     Route: 048
     Dates: start: 20161202
  6. DEXAMETHASONE [Suspect]
     Active Substance: DEXAMETHASONE
     Dosage: 20 MG (FREQUENCY TEXT: NOT PROVIDED)
     Route: 048
     Dates: start: 20161209
  7. DEXAMETHASONE [Suspect]
     Active Substance: DEXAMETHASONE
     Dosage: 20 MG (FREQUENCY TEXT: NOT PROVIDED)
     Route: 048
     Dates: start: 20161216
  8. DEXAMETHASONE [Suspect]
     Active Substance: DEXAMETHASONE
     Dosage: 20 MG (FREQUENCY TEXT: NOT PROVIDED)
     Route: 048
     Dates: start: 20161223
  9. POMALIDOMIDE [Suspect]
     Active Substance: POMALIDOMIDE
     Indication: Plasma cell myeloma
     Dosage: 4 MG (FREQUENCY TEXT: NOT PROVIDED)
     Route: 048
     Dates: start: 20160811, end: 20160831
  10. POMALIDOMIDE [Suspect]
     Active Substance: POMALIDOMIDE
     Dosage: 4 MG (FREQUENCY TEXT: NOT PROVIDED)
     Route: 048
     Dates: start: 20161202, end: 20161222

REACTIONS (3)
  - Neutropenia [Recovered/Resolved]
  - Leukopenia [Recovered/Resolved]
  - Leukopenia [Recovered/Resolved]

NARRATIVE: CASE EVENT DATE: 20160901
